FAERS Safety Report 23988038 (Version 1)
Quarter: 2024Q2

REPORT INFORMATION
  Report Type: Report from Study
  Country: US (occurrence: US)
  Receive Date: 20240619
  Receipt Date: 20240619
  Transmission Date: 20240716
  Serious: Yes (Hospitalization)
  Sender: FDA-Public Use
  Company Number: US-ORG100016242-2024000320

PATIENT
  Age: 69 Year
  Sex: Male

DRUGS (1)
  1. ZILRETTA [Suspect]
     Active Substance: TRIAMCINOLONE ACETONIDE
     Indication: Osteoarthritis
     Dosage: 32 MG, BOTH KNEES
     Route: 014

REACTIONS (2)
  - Cardiac operation [Recovering/Resolving]
  - Therapeutic product effect decreased [Unknown]
